FAERS Safety Report 25193790 (Version 1)
Quarter: 2025Q2

REPORT INFORMATION
  Report Type: Report from Study
  Country: US (occurrence: US)
  Receive Date: 20250414
  Receipt Date: 20250414
  Transmission Date: 20250717
  Serious: Yes (Hospitalization)
  Sender: ABBVIE
  Company Number: US-ABBVIE-6185435

PATIENT
  Age: 80 Year
  Sex: Male
  Weight: 105 kg

DRUGS (1)
  1. SKYRIZI [Suspect]
     Active Substance: RISANKIZUMAB-RZAA
     Indication: Psoriasis
     Route: 058
     Dates: start: 2021, end: 202501

REACTIONS (5)
  - Pneumonia [Recovered/Resolved]
  - Cardiac failure [Not Recovered/Not Resolved]
  - Dehydration [Recovered/Resolved]
  - Hypertension [Unknown]
  - Dyspnoea [Not Recovered/Not Resolved]

NARRATIVE: CASE EVENT DATE: 20250101
